FAERS Safety Report 16199912 (Version 1)
Quarter: 2019Q2

REPORT INFORMATION
  Report Type: Spontaneous
  Country: JP (occurrence: JP)
  Receive Date: 20190415
  Receipt Date: 20190415
  Transmission Date: 20190711
  Serious: Yes (Hospitalization)
  Sender: FDA-Public Use
  Company Number: PHJP2019JP004349

PATIENT
  Age: 63 Year
  Sex: Male

DRUGS (2)
  1. IMATINIB. [Suspect]
     Active Substance: IMATINIB MESYLATE
     Indication: GASTROINTESTINAL STROMAL TUMOUR
     Dosage: 400 MG, UNK
     Route: 048
  2. IMATINIB. [Suspect]
     Active Substance: IMATINIB MESYLATE
     Dosage: 200 MG, QD
     Route: 048

REACTIONS (5)
  - Ascites [Recovering/Resolving]
  - Abdominal pain lower [Recovering/Resolving]
  - Abdominal abscess [Recovering/Resolving]
  - Gastrointestinal perforation [Recovering/Resolving]
  - Pneumoperitoneum [Recovering/Resolving]
